FAERS Safety Report 9423790 (Version 1)
Quarter: 2013Q3

REPORT INFORMATION
  Report Type: Report from Study
  Country: DE (occurrence: DE)
  Receive Date: 20130729
  Receipt Date: 20130729
  Transmission Date: 20140515
  Serious: Yes (Other)
  Sender: FDA-Public Use
  Company Number: DE-ROCHE-1253026

PATIENT
  Sex: Male

DRUGS (3)
  1. RANIBIZUMAB [Suspect]
     Indication: AGE-RELATED MACULAR DEGENERATION
     Route: 050
     Dates: start: 20120927
  2. RANIBIZUMAB [Suspect]
     Route: 050
     Dates: start: 20121024
  3. RANIBIZUMAB [Suspect]
     Route: 050
     Dates: start: 20121121

REACTIONS (3)
  - Angina pectoris [Unknown]
  - Cardiac disorder [Not Recovered/Not Resolved]
  - General physical health deterioration [Unknown]
